FAERS Safety Report 9455371 (Version 1)
Quarter: 2013Q3

REPORT INFORMATION
  Report Type: Report from Study
  Country: US (occurrence: US)
  Receive Date: 20130813
  Receipt Date: 20130813
  Transmission Date: 20140515
  Serious: Yes (Other)
  Sender: FDA-Public Use
  Company Number: PHHY2013US084790

PATIENT
  Age: 44 Year
  Sex: Female

DRUGS (9)
  1. GILENYA [Suspect]
     Indication: MULTIPLE SCLEROSIS
     Dosage: 0.5 MG, QD
     Route: 048
     Dates: start: 20110302
  2. TOVIAZ [Concomitant]
  3. CYMBALTA [Concomitant]
  4. MECLIZINE [Concomitant]
  5. LYRICA [Concomitant]
  6. ENABLEX [Concomitant]
  7. DOXAZOSIN MESYLATE [Concomitant]
  8. BACLOFEN [Concomitant]
  9. NEXUM [Concomitant]

REACTIONS (3)
  - Loss of consciousness [Unknown]
  - Contusion [Unknown]
  - Fall [Unknown]
